FAERS Safety Report 22190944 (Version 1)
Quarter: 2023Q2

REPORT INFORMATION
  Report Type: Spontaneous
  Country: US (occurrence: None)
  Receive Date: 20230409
  Receipt Date: 20230409
  Transmission Date: 20230722
  Serious: Yes (Other)
  Sender: FDA-Public Use
  Company Number: None

PATIENT
  Age: 36 Year
  Sex: Female
  Weight: 58.5 kg

DRUGS (1)
  1. HERBALS\MITRAGYNINE [Suspect]
     Active Substance: HERBALS\MITRAGYNINE
     Indication: Feeling of relaxation
     Route: 048
     Dates: start: 20230408, end: 20230408

REACTIONS (10)
  - Dizziness [None]
  - Hot flush [None]
  - Hyperhidrosis [None]
  - Anxiety [None]
  - Feeling hot [None]
  - Dry mouth [None]
  - Nausea [None]
  - Hypopnoea [None]
  - Somniphobia [None]
  - Product complaint [None]

NARRATIVE: CASE EVENT DATE: 20230408
